FAERS Safety Report 20258203 (Version 1)
Quarter: 2021Q4

REPORT INFORMATION
  Report Type: Spontaneous
  Country: US (occurrence: None)
  Receive Date: 20211229
  Receipt Date: 20211229
  Transmission Date: 20220303
  Serious: No
  Sender: FDA-Public Use
  Company Number: None

PATIENT
  Age: 27 Year
  Sex: Female
  Weight: 63.5 kg

DRUGS (1)
  1. HUMIRA [Suspect]
     Active Substance: ADALIMUMAB
     Indication: Psoriasis
     Dosage: FREQUENCY : EVERY OTHER WEEK;? INJECT 40MG SUBCUTANEOUSLY EVERY 2 WEES   AS DIRECTED
     Route: 058
     Dates: start: 202103

REACTIONS (2)
  - COVID-19 [None]
  - Intentional dose omission [None]
